FAERS Safety Report 6466800-1 (Version None)
Quarter: 2009Q4

REPORT INFORMATION
  Report Type: 
  Country: None (occurrence: None)
  Receive Date: 20091202
  Receipt Date: 20091201
  Transmission Date: 20100525
  Serious: Yes (Death)
  Sender: FDA-Public Use
  Company Number: US-ROXANE LABORATORIES, INC.-2009-RO-01200RO

PATIENT
  Sex: Male

DRUGS (1)
  1. DEXAMETHASONE TAB [Suspect]
     Indication: MENINGIOMA
     Dosage: 12 MG
     Dates: start: 20090730

REACTIONS (5)
  - BLOOD GLUCOSE INCREASED [None]
  - DECREASED APPETITE [None]
  - LARGE INTESTINE PERFORATION [None]
  - MUSCULAR WEAKNESS [None]
  - RESPIRATORY FAILURE [None]
